FAERS Safety Report 9850474 (Version 1)
Quarter: 2013Q4

REPORT INFORMATION
  Report Type: Spontaneous
  Country: US (occurrence: None)
  Receive Date: 20131226
  Receipt Date: 20131226
  Transmission Date: 20140711
  Serious: Yes (Other)
  Sender: FDA-Public Use
  Company Number: PHEH2013US000670

PATIENT
  Age: 64 Year
  Sex: Male

DRUGS (1)
  1. DIOVAN [Suspect]
     Dosage: 0.25 DF ONCE PER DAY, ORAL
     Route: 048

REACTIONS (3)
  - Blood pressure increased [None]
  - Sexual dysfunction [None]
  - Wrong technique in drug usage process [None]
